FAERS Safety Report 5449641-3 (Version None)
Quarter: 2007Q3

REPORT INFORMATION
  Report Type: 
  Country: None (occurrence: None)
  Receive Date: 20070910
  Receipt Date: 20070828
  Transmission Date: 20080115
  Serious: Yes (Other)
  Sender: FDA-Public Use
  Company Number: 2007RR-09663

PATIENT
  Age: 81 Year
  Sex: Male
  Weight: 72 kg

DRUGS (8)
  1. SIMVASTATIN [Suspect]
     Indication: HYPERLIPIDAEMIA
     Dosage: 40 MG, ORAL
     Route: 048
     Dates: start: 20070530, end: 20070719
  2. ACTONEL (RISENDRONATE SODIUM) [Concomitant]
  3. ASPIRIN TABLETS BP 300MG (ASPIRIN) [Concomitant]
  4. CALCICHEW D3 (CALCIUM CARONATE; CHOLECALCIFEROL) [Concomitant]
  5. BISOPROLOL FUMARATE [Concomitant]
  6. FUROSEMIDE [Concomitant]
  7. LANSOPRAZOLE [Concomitant]
  8. RAMIPRIL 10 MG CAPSULES (RAMIPRIL) [Concomitant]

REACTIONS (4)
  - BLISTER [None]
  - DERMATITIS [None]
  - OEDEMA PERIPHERAL [None]
  - PRURITUS [None]
